FAERS Safety Report 19899966 (Version 1)
Quarter: 2021Q3

REPORT INFORMATION
  Report Type: Spontaneous
  Country: US (occurrence: US)
  Receive Date: 20210929
  Receipt Date: 20210929
  Transmission Date: 20211014
  Serious: Yes (Other)
  Sender: FDA-Public Use
  Company Number: US-UNITED THERAPEUTICS-UNT-2021-018984

PATIENT
  Sex: Female

DRUGS (1)
  1. REMODULIN [Suspect]
     Active Substance: TREPROSTINIL
     Indication: PULMONARY HYPERTENSION
     Dosage: UNK, CONTINUING
     Route: 041

REACTIONS (5)
  - Syncope [Recovered/Resolved]
  - Spinal column injury [Unknown]
  - Fall [Recovered/Resolved with Sequelae]
  - Device failure [Unknown]
  - Head injury [Unknown]
